FAERS Safety Report 15632741 (Version 1)
Quarter: 2018Q4

REPORT INFORMATION
  Report Type: Report from Study
  Country: ES (occurrence: ES)
  Receive Date: 20181119
  Receipt Date: 20181119
  Transmission Date: 20190205
  Serious: Yes (Other)
  Sender: FDA-Public Use
  Company Number: ES-PFIZER INC-2018221770

PATIENT
  Age: 54 Year
  Sex: Female
  Weight: 58 kg

DRUGS (8)
  1. BEVACIZUMAB. [Suspect]
     Active Substance: BEVACIZUMAB
     Dosage: UNK UNK, EVERY 3 WEEKS
     Route: 042
     Dates: end: 20180110
  2. DEXAMETHASONE. [Concomitant]
     Active Substance: DEXAMETHASONE
     Dosage: 16 MG, UNK
     Route: 042
     Dates: start: 20160630
  3. BEVACIZUMAB. [Suspect]
     Active Substance: BEVACIZUMAB
     Indication: BREAST CANCER METASTATIC
     Dosage: 10 MG/KG, EVERY 3 WEEKS
     Route: 042
     Dates: start: 20160630
  4. ONDASETRON [Concomitant]
     Active Substance: ONDANSETRON
     Dosage: 8 MG, UNK
     Route: 042
     Dates: start: 20160630
  5. RANITIDINE. [Concomitant]
     Active Substance: RANITIDINE
     Dosage: 50 MG, UNK
     Route: 042
     Dates: start: 20160630
  6. DEXCLORFENIRAMINA [Concomitant]
     Active Substance: DEXCHLORPHENIRAMINE
     Dosage: 5 MG, UNK
     Route: 042
     Dates: start: 20160630
  7. PACLITAXEL. [Suspect]
     Active Substance: PACLITAXEL
     Indication: BREAST CANCER METASTATIC
     Dosage: 80 MG/M2, WEEKLY
     Route: 042
     Dates: start: 20160630, end: 20161209
  8. BROMAZEPAM [Concomitant]
     Active Substance: BROMAZEPAM
     Dosage: 1.5 MG, UNK
     Route: 048
     Dates: start: 20160822

REACTIONS (11)
  - Neutropenia [Recovered/Resolved]
  - Onycholysis [Recovered/Resolved]
  - Neutrophil count decreased [Recovered/Resolved]
  - Arthralgia [Recovered/Resolved]
  - Epistaxis [Recovered/Resolved]
  - Hypertension [Recovering/Resolving]
  - Neurotoxicity [Recovered/Resolved]
  - Palmar-plantar erythrodysaesthesia syndrome [Recovered/Resolved]
  - Asthenia [Recovered/Resolved]
  - Dyspnoea [Recovered/Resolved]
  - Constipation [Recovered/Resolved]

NARRATIVE: CASE EVENT DATE: 20160707
